FAERS Safety Report 4643545-1 (Version None)
Quarter: 2005Q2

REPORT INFORMATION
  Report Type: 
  Country: None (occurrence: None)
  Receive Date: 20050425
  Receipt Date: 20050413
  Transmission Date: 20051028
  Serious: Yes (Life-Threatening)
  Sender: FDA-Public Use
  Company Number: AU-JNJFOC-20050304274

PATIENT
  Age: 16 Year
  Sex: Female
  Weight: 72 kg

DRUGS (13)
  1. REMICADE [Suspect]
     Route: 042
  2. MESASAL [Concomitant]
  3. CALTRATE [Concomitant]
  4. NILSTAT [Concomitant]
  5. URAL [Concomitant]
  6. URAL [Concomitant]
  7. URAL [Concomitant]
  8. URAL [Concomitant]
  9. METOCLOPROMIDE [Concomitant]
  10. TRIMETHOPRIM [Concomitant]
  11. ACETAMINOPHEN W/ CODEINE [Concomitant]
  12. ACETAMINOPHEN W/ CODEINE [Concomitant]
  13. HYDROCORTISONE [Concomitant]

REACTIONS (5)
  - DYSPNOEA [None]
  - FACE OEDEMA [None]
  - FLUSHING [None]
  - HYPOXIA [None]
  - TACHYPNOEA [None]
